FAERS Safety Report 6331712-0 (Version None)
Quarter: 2009Q3

REPORT INFORMATION
  Report Type: 
  Country: None (occurrence: None)
  Receive Date: 20090827
  Receipt Date: 20090824
  Transmission Date: 20100115
  Serious: Yes (Life-Threatening, Other)
  Sender: FDA-Public Use
  Company Number: DE-B.I. PHARMACEUTICALS,INC./RIDGEFIELD-2009-DE-05578DE

PATIENT
  Sex: Female

DRUGS (1)
  1. SIFROL [Suspect]
     Dosage: 1.05 MG
     Route: 048

REACTIONS (4)
  - COMA [None]
  - DRUG ABUSE [None]
  - OVERDOSE [None]
  - SUICIDE ATTEMPT [None]
